FAERS Safety Report 13902942 (Version 1)
Quarter: 2017Q3

REPORT INFORMATION
  Report Type: Report from Study
  Country: US (occurrence: US)
  Receive Date: 20170824
  Receipt Date: 20170824
  Transmission Date: 20171127
  Serious: Yes (Hospitalization)
  Sender: FDA-Public Use
  Company Number: US-ROCHE-1475886

PATIENT
  Age: 29 Year
  Sex: Female
  Weight: 45.36 kg

DRUGS (22)
  1. OCRELIZUMAB. [Suspect]
     Active Substance: OCRELIZUMAB
     Indication: MULTIPLE SCLEROSIS RELAPSE
     Dosage: DOSE: DUAL INFUSIONS OF 300 MG ON DAYS 1 AND 15 OF THE FIRST 24-WEEK TREATMENT CYCLE, AND AS A SINGL
     Route: 042
     Dates: start: 20131219
  2. EFFEXOR XR [Concomitant]
     Active Substance: VENLAFAXINE HYDROCHLORIDE
     Indication: DEPRESSION
     Route: 048
     Dates: start: 20081014
  3. BENADRYL [Concomitant]
     Active Substance: DIPHENHYDRAMINE HYDROCHLORIDE
     Indication: PREMEDICATION
     Route: 065
     Dates: start: 20160929
  4. LACTULOSE. [Concomitant]
     Active Substance: LACTULOSE
     Route: 048
     Dates: start: 20170614, end: 20170614
  5. MORPHINE [Concomitant]
     Active Substance: MORPHINE
     Route: 065
     Dates: start: 20170614, end: 20170614
  6. INTERFERON BETA-1A [Suspect]
     Active Substance: INTERFERON BETA-1A
     Dosage: DURING WEEKS 3 AND 4: 22 MICROGRAM INJECTION 3 TIMES PER WEEK;?FROM THE 5TH WEEK: 44 MICROGRAM INJEC
     Route: 058
     Dates: end: 20131216
  7. PLACEBO [Suspect]
     Active Substance: UNSPECIFIED INGREDIENT
     Indication: MULTIPLE SCLEROSIS RELAPSE
     Dosage: DOSE: DUAL INFUSIONS ON DAYS 1 AND 15 OF THE FIRST 24-WEEK TREATMENT CYCLE AND AS SINGLE INFUSION ON
     Route: 042
     Dates: start: 20120118, end: 20130604
  8. DIPHENHYDRAMINE. [Concomitant]
     Active Substance: DIPHENHYDRAMINE
     Indication: PREMEDICATION
     Dosage: SUBSEQUENT DOSES WERE RECEIVED ON 31/JAN/2012, 05/JUL/2012, 18/DEC/2012, 04/JUN/2013, 19/DEC/2013, 0
     Route: 065
     Dates: start: 20120118
  9. METHYLPREDNISOLONE. [Concomitant]
     Active Substance: METHYLPREDNISOLONE
     Indication: PREMEDICATION
     Dosage: SUBSEQUENT DOSES WERE RECEIVED ON 31/JAN/2012, 05/JUL/2012, 18/DEC/2012, 04/JUN/2013, 19/DEC/2013, 0
     Route: 065
     Dates: start: 20120118
  10. PREDNISONE. [Concomitant]
     Active Substance: PREDNISONE
     Indication: MULTIPLE SCLEROSIS
     Route: 048
     Dates: start: 2012
  11. NORMAL SALINE [Concomitant]
     Active Substance: SODIUM CHLORIDE
     Dosage: OVER 30 MINUTES
     Route: 042
     Dates: start: 20170614, end: 20170614
  12. OCRELIZUMAB. [Suspect]
     Active Substance: OCRELIZUMAB
     Dosage: LAST DOSE PRIOR TO ACUTE FOCAL LEFT KIDNEY PYELONEPHRITIS WAS ON 05/JUN/2014 (520 ML).?SUBSEQUENT DO
     Route: 042
     Dates: start: 20140102
  13. ACETAMINOPHEN. [Concomitant]
     Active Substance: ACETAMINOPHEN
     Dosage: AS TREATMENT MEDICATION FOR PAIN
     Route: 048
     Dates: start: 20140705, end: 20140708
  14. CIPRO [Concomitant]
     Active Substance: CIPROFLOXACIN HYDROCHLORIDE
     Route: 048
     Dates: start: 20130328, end: 20130404
  15. MAGNESIUM CITRATE. [Concomitant]
     Active Substance: MAGNESIUM CITRATE
     Route: 048
     Dates: start: 20170614, end: 20170614
  16. MIRALAX [Concomitant]
     Active Substance: POLYETHYLENE GLYCOL 3350
     Route: 048
  17. ACETAMINOPHEN. [Concomitant]
     Active Substance: ACETAMINOPHEN
     Indication: PREMEDICATION
     Dosage: SUBSEQUENT DOSES WERE RECEIVED ON 31/JAN/2012, 05/JUL/2012, 18/DEC/2012, 04/JUN/2013, 19/DEC/2013, 0
     Route: 065
     Dates: start: 20120118
  18. IMPLANON [Concomitant]
     Active Substance: ETONOGESTREL
     Indication: CONTRACEPTION
     Route: 059
     Dates: start: 2008
  19. CIPRO [Concomitant]
     Active Substance: CIPROFLOXACIN HYDROCHLORIDE
     Route: 048
     Dates: start: 201110, end: 201110
  20. CIPRO [Concomitant]
     Active Substance: CIPROFLOXACIN HYDROCHLORIDE
     Indication: URINARY TRACT INFECTION
     Route: 065
     Dates: start: 20151111, end: 20151125
  21. ZOFRAN [Concomitant]
     Active Substance: ONDANSETRON HYDROCHLORIDE
     Route: 042
     Dates: start: 20170614, end: 20170614
  22. INTERFERON BETA-1A [Suspect]
     Active Substance: INTERFERON BETA-1A
     Indication: MULTIPLE SCLEROSIS RELAPSE
     Dosage: FOR WEEK 1 AND 2
     Route: 058
     Dates: start: 20120118

REACTIONS (2)
  - Pyelonephritis [Recovered/Resolved]
  - Pyelonephritis acute [Recovered/Resolved]

NARRATIVE: CASE EVENT DATE: 20140705
